FAERS Safety Report 4746935-1 (Version None)
Quarter: 2005Q3

REPORT INFORMATION
  Report Type: 
  Country: None (occurrence: None)
  Receive Date: 20050817
  Receipt Date: 20030211
  Transmission Date: 20060218
  Serious: Yes (Hospitalization)
  Sender: FDA-Public Use
  Company Number: PHRM2003FR00741

PATIENT
  Age: 32 Year
  Sex: Female

DRUGS (11)
  1. VOLTAREN [Suspect]
     Indication: NECK PAIN
     Dosage: 150 MG/DAY
     Route: 030
     Dates: start: 20021213, end: 20021218
  2. EFFERALGAN [Suspect]
     Indication: NECK PAIN
     Dosage: 3 G/DAY
     Route: 048
     Dates: start: 20021209, end: 20021212
  3. PROPOFAN ^AVENTIS^ [Suspect]
     Indication: NECK PAIN
     Dosage: 2 TABS EVERY 6 HOURS IF NEEDED
     Route: 048
     Dates: start: 20021212, end: 20021218
  4. ANTARENE [Suspect]
     Indication: NECK PAIN
     Dosage: 1200 MG/DAY
     Route: 048
     Dates: start: 20021209, end: 20021212
  5. MIOREL [Concomitant]
     Indication: NECK PAIN
     Dosage: 2 INJ./DAY
     Route: 030
     Dates: start: 20021213, end: 20021218
  6. TETRAZEPAM [Concomitant]
     Indication: MYALGIA
     Dosage: 25 MG, QD
     Route: 048
     Dates: start: 20021209, end: 20021218
  7. MEGAMAG [Concomitant]
     Dosage: 90 MG, BID
     Dates: start: 20021209, end: 20021224
  8. SPASMINE [Concomitant]
     Dosage: 2 DF, TID
     Route: 048
     Dates: start: 20021209, end: 20021216
  9. PANOS [Concomitant]
     Dosage: 1 TAB/DAY
     Route: 048
     Dates: start: 20021213, end: 20021218
  10. SEGLOR [Concomitant]
     Dosage: 1 DF, BID
     Route: 048
     Dates: start: 20021216
  11. BROMAZEPAM [Concomitant]
     Dosage: 0.5 DF, QD
     Route: 048
     Dates: start: 20021216

REACTIONS (5)
  - ABDOMINAL PAIN UPPER [None]
  - CHOLESTASIS [None]
  - CYTOLYTIC HEPATITIS [None]
  - DIARRHOEA [None]
  - VOMITING [None]
